FAERS Safety Report 8775500 (Version 2)
Quarter: 2012Q4

REPORT INFORMATION
  Report Type: Report from Study
  Country: US (occurrence: US)
  Receive Date: 20120909
  Receipt Date: 20120910
  Transmission Date: 20130627
  Serious: Yes (Hospitalization, Other)
  Sender: FDA-Public Use
  Company Number: US-ABBOTT-12P-163-0976056-00

PATIENT
  Age: 60 Year
  Sex: Male

DRUGS (7)
  1. HUMIRA [Suspect]
     Indication: PSORIASIS
  2. PROPRANOLOL [Concomitant]
     Indication: PRODUCT USED FOR UNKNOWN INDICATION
     Dosage: 25 mg every day
  3. ASPIRIN [Concomitant]
     Indication: PRODUCT USED FOR UNKNOWN INDICATION
     Dosage: 325 mg daily
  4. RAMIPRIL [Concomitant]
     Indication: MYOCARDIAL INFARCTION
  5. PEPCID [Concomitant]
     Indication: PRODUCT USED FOR UNKNOWN INDICATION
  6. LIPITOR [Concomitant]
     Indication: PRODUCT USED FOR UNKNOWN INDICATION
     Dosage: Every night
  7. VITAMIN D [Concomitant]
     Indication: PRODUCT USED FOR UNKNOWN INDICATION

REACTIONS (7)
  - Coronary artery occlusion [Recovered/Resolved]
  - Injection site pain [Unknown]
  - Cardiac enzymes increased [Unknown]
  - Injection site mass [Unknown]
  - Injection site swelling [Recovered/Resolved]
  - Device malfunction [Unknown]
  - Drug dose omission [Unknown]
